FAERS Safety Report 9441092 (Version 1)
Quarter: 2013Q3

REPORT INFORMATION
  Report Type: Spontaneous
  Country: GB (occurrence: None)
  Receive Date: 20130801
  Receipt Date: 20130801
  Transmission Date: 20140515
  Serious: Yes (Life-Threatening, Hospitalization)
  Sender: FDA-Public Use
  Company Number: AUR-APL-2013-06233

PATIENT
  Age: 67 Year
  Sex: Female

DRUGS (11)
  1. RAMIPRIL (RAMIPRIL) [Suspect]
     Indication: HYPERTENSION
     Dosage: 5 MG ( 5MG, 1 IN 1 D), ORAL
     Route: 048
     Dates: start: 2011, end: 20130618
  2. CARBIMAZOLE [Suspect]
     Indication: HYPERTHYROIDISM
     Dosage: 20 MG (20 MG, 1 IN 1 D), ORAL
     Route: 048
     Dates: start: 201304, end: 20130620
  3. ADCAL-D3 [Suspect]
  4. BISOPROLOL (BISOPROLOL) [Suspect]
  5. CLOMIPRAMINE (CLOMIPRAMINE) [Suspect]
  6. CLOPIDOGREL (CLOPIDOGREL) [Suspect]
  7. LANSOPRAZOLE (LANSOPRAZOLE) [Suspect]
  8. MODAFINIL [Suspect]
  9. NICORANDIL (NICORANDIL) [Suspect]
  10. OMACOR [Suspect]
  11. SIMVASTATIN (SIMVASTATIN) [Suspect]

REACTIONS (1)
  - Angioedema [None]
